FAERS Safety Report 25463447 (Version 3)
Quarter: 2025Q3

REPORT INFORMATION
  Report Type: Spontaneous
  Country: JP (occurrence: JP)
  Receive Date: 20250620
  Receipt Date: 20250803
  Transmission Date: 20251020
  Serious: Yes (Hospitalization)
  Sender: ALEXION PHARMACEUTICALS
  Company Number: JP-ASTRAZENECA-250060348_063010_P_1

PATIENT
  Age: 62 Year
  Sex: Male

DRUGS (7)
  1. DAPAGLIFLOZIN [Suspect]
     Active Substance: DAPAGLIFLOZIN
     Indication: Chronic kidney disease
     Dosage: AFTER BREAKFAST
  2. FUROSEMIDE [Concomitant]
     Active Substance: FUROSEMIDE
     Dosage: AFTER BREAKFAST
  3. TOLVAPTAN [Concomitant]
     Active Substance: TOLVAPTAN
     Dosage: AFTER BREAKFAST
  4. ESAXERENONE [Concomitant]
     Active Substance: ESAXERENONE
     Dosage: AFTER BREAKFAST
  5. CARVEDILOL [Concomitant]
     Active Substance: CARVEDILOL
     Dosage: AFTER BREAKFAST AND DINNER
  6. SACUBITRIL\VALSARTAN [Concomitant]
     Active Substance: SACUBITRIL\VALSARTAN
     Dosage: AFTER BREAKFAST AND DINNER
  7. MITIGLINIDE CALCIUM HYDRATE [Concomitant]
     Active Substance: MITIGLINIDE CALCIUM HYDRATE
     Dosage: JUST BEFORE BREAKFAST, LUNCH, AND DINNER

REACTIONS (3)
  - Chronic kidney disease [Unknown]
  - Hyperglycaemic hyperosmolar nonketotic syndrome [Unknown]
  - Dehydration [Unknown]
